FAERS Safety Report 12636832 (Version 1)
Quarter: 2016Q3

REPORT INFORMATION
  Report Type: Spontaneous
  Country: GB (occurrence: GB)
  Receive Date: 20160809
  Receipt Date: 20160809
  Transmission Date: 20161109
  Serious: Yes (Other)
  Sender: FDA-Public Use
  Company Number: GB-PFIZER INC-2016372111

PATIENT
  Age: 18 Month
  Sex: Male

DRUGS (2)
  1. ITRACONAZOLE. [Concomitant]
     Active Substance: ITRACONAZOLE
     Indication: CHRONIC GRANULOMATOUS DISEASE
     Dosage: UNK
  2. MEROPENEM. [Suspect]
     Active Substance: MEROPENEM
     Indication: CHRONIC GRANULOMATOUS DISEASE
     Dosage: UNK
     Route: 042

REACTIONS (1)
  - Neutropenia [Recovered/Resolved]
